FAERS Safety Report 9447891 (Version 1)
Quarter: 2013Q3

REPORT INFORMATION
  Report Type: Spontaneous
  Country: JP (occurrence: JP)
  Receive Date: 20130808
  Receipt Date: 20130808
  Transmission Date: 20140515
  Serious: Yes (Hospitalization)
  Sender: FDA-Public Use
  Company Number: PHHY2013JP071552

PATIENT
  Age: 51 Year
  Sex: Female

DRUGS (4)
  1. NEORAL [Suspect]
     Indication: LIVER TRANSPLANT
     Dosage: 400 MG, DAILY
     Route: 048
     Dates: start: 201112
  2. METHYLPREDNISOLONE [Suspect]
     Indication: LIVER TRANSPLANT
     Route: 048
     Dates: start: 201112
  3. MYCOPHENOLATE MOFETIL [Suspect]
     Indication: LIVER TRANSPLANT
     Route: 048
     Dates: start: 201112
  4. STEROID PULSE THERAPY [Concomitant]
     Indication: LIVER TRANSPLANT REJECTION

REACTIONS (4)
  - Liver abscess [Recovering/Resolving]
  - Abdominal pain [Recovering/Resolving]
  - Klebsiella infection [Recovering/Resolving]
  - Pyrexia [Recovering/Resolving]
